FAERS Safety Report 16330082 (Version 4)
Quarter: 2019Q3

REPORT INFORMATION
  Report Type: Spontaneous
  Country: US (occurrence: US)
  Receive Date: 20190520
  Receipt Date: 20190925
  Transmission Date: 20191004
  Serious: Yes (Death, Hospitalization, Other)
  Sender: FDA-Public Use
  Company Number: US-BRISTOL-MYERS SQUIBB COMPANY-BMS-2019-047133

PATIENT
  Sex: Male
  Weight: 92.97 kg

DRUGS (1)
  1. ELIQUIS [Suspect]
     Active Substance: APIXABAN
     Indication: CEREBROVASCULAR ACCIDENT PROPHYLAXIS
     Dosage: 5 MILLIGRAM, BID
     Route: 048
     Dates: start: 20180301, end: 201810

REACTIONS (11)
  - Cerebrovascular accident [Unknown]
  - Haemorrhage [Not Recovered/Not Resolved]
  - Renal disorder [Unknown]
  - Vascular dementia [Not Recovered/Not Resolved]
  - Anaemia [Unknown]
  - Asthenia [Unknown]
  - Haematuria [Not Recovered/Not Resolved]
  - Full blood count decreased [Unknown]
  - Lower gastrointestinal haemorrhage [Not Recovered/Not Resolved]
  - Skin laceration [Unknown]
  - Drug ineffective [Unknown]

NARRATIVE: CASE EVENT DATE: 2018
